FAERS Safety Report 16211085 (Version 4)
Quarter: 2019Q3

REPORT INFORMATION
  Report Type: Report from Study
  Country: IL (occurrence: IL)
  Receive Date: 20190418
  Receipt Date: 20190702
  Transmission Date: 20191004
  Serious: Yes (Other)
  Sender: FDA-Public Use
  Company Number: IL-IPSEN BIOPHARMACEUTICALS, INC.-2019-06270

PATIENT
  Age: 47 Year
  Sex: Female

DRUGS (2)
  1. MICROPIRIN [Concomitant]
     Active Substance: ASPIRIN
  2. SOMATULINE AUTOGEL 90MG [Suspect]
     Active Substance: LANREOTIDE ACETATE
     Indication: ACROMEGALY
     Route: 065
     Dates: start: 20150507, end: 2019

REACTIONS (3)
  - Off label use [Unknown]
  - Cholecystitis [Recovered/Resolved]
  - Post procedural infection [Recovering/Resolving]

NARRATIVE: CASE EVENT DATE: 20190406
